FAERS Safety Report 6884654-6 (Version None)
Quarter: 2010Q3

REPORT INFORMATION
  Report Type: 
  Country: None (occurrence: None)
  Receive Date: 20100729
  Receipt Date: 20070803
  Transmission Date: 20110219
  Serious: No
  Sender: FDA-Public Use
  Company Number: US-PFIZER INC-2007060397

PATIENT
  Sex: Male
  Weight: 56.818 kg

DRUGS (2)
  1. CELEBREX [Suspect]
     Indication: NERVE COMPRESSION
     Dates: start: 20070101
  2. CELEBREX [Suspect]
     Indication: INTERVERTEBRAL DISC PROTRUSION

REACTIONS (1)
  - ABDOMINAL PAIN UPPER [None]
